FAERS Safety Report 21381468 (Version 2)
Quarter: 2022Q4

REPORT INFORMATION
  Report Type: Spontaneous
  Country: US (occurrence: US)
  Receive Date: 20220927
  Receipt Date: 20221007
  Transmission Date: 20230113
  Serious: No
  Sender: FDA-Public Use
  Company Number: US-LUPIN PHARMACEUTICALS INC.-2022-11282

PATIENT
  Sex: Female

DRUGS (1)
  1. NORETHINDRONE [Suspect]
     Active Substance: NORETHINDRONE
     Indication: Oral contraception
     Dosage: 0.35 MG
     Route: 048

REACTIONS (3)
  - Product dose omission issue [Unknown]
  - Exposure via breast milk [Unknown]
  - No adverse event [Unknown]
